FAERS Safety Report 13471960 (Version 1)
Quarter: 2017Q2

REPORT INFORMATION
  Report Type: Spontaneous
  Country: US (occurrence: US)
  Receive Date: 20170424
  Receipt Date: 20170424
  Transmission Date: 20170830
  Serious: No
  Sender: FDA-Public Use
  Company Number: US-PFIZER INC-2017176728

PATIENT
  Age: 13 Year
  Sex: Female
  Weight: 42 kg

DRUGS (2)
  1. DESONIDE. [Concomitant]
     Active Substance: DESONIDE
     Indication: PSORIASIS
     Dosage: ALTERNATELY
  2. EUCRISA [Suspect]
     Active Substance: CRISABOROLE
     Indication: PSORIASIS
     Dosage: ABOUT A QUARTER OF A TEASPOON, 2X/DAY
     Dates: start: 20170419

REACTIONS (2)
  - Product use in unapproved indication [Unknown]
  - Application site pain [Recovered/Resolved]

NARRATIVE: CASE EVENT DATE: 20170419
